FAERS Safety Report 8126168-1 (Version None)
Quarter: 2012Q1

REPORT INFORMATION
  Report Type: 
  Country: None (occurrence: None)
  Receive Date: 20120209
  Receipt Date: 20120206
  Transmission Date: 20120608
  Serious: Yes (Death)
  Sender: FDA-Public Use
  Company Number: PHEH2012US003190

PATIENT

DRUGS (2)
  1. AMBIEN [Suspect]
  2. GILENYA [Suspect]
     Route: 048

REACTIONS (2)
  - INTENTIONAL OVERDOSE [None]
  - COMPLETED SUICIDE [None]
